FAERS Safety Report 10206431 (Version 1)
Quarter: 2014Q2

REPORT INFORMATION
  Report Type: Spontaneous
  Country: US (occurrence: None)
  Receive Date: 20140527
  Receipt Date: 20140527
  Transmission Date: 20141212
  Serious: Yes (Disabling)
  Sender: FDA-Public Use
  Company Number: None

PATIENT
  Age: 52 Year
  Sex: Female
  Weight: 54.43 kg

DRUGS (1)
  1. LIALDA [Suspect]
     Indication: INFLAMMATORY BOWEL DISEASE
     Dosage: LESS THAN 2 WEEKS, TWICE DAILY, TAKEN BY MOUTH
     Route: 048

REACTIONS (2)
  - Depression [None]
  - Anxiety [None]
